FAERS Safety Report 5845748-7 (Version None)
Quarter: 2008Q3

REPORT INFORMATION
  Report Type: 
  Country: None (occurrence: None)
  Receive Date: 20080814
  Receipt Date: 20080811
  Transmission Date: 20090109
  Serious: Yes (Hospitalization, Other)
  Sender: FDA-Public Use
  Company Number: PHBS2006BR16861

PATIENT
  Age: 54 Year
  Sex: Female
  Weight: 73 kg

DRUGS (9)
  1. VOLTAREN [Suspect]
     Indication: EXOSTOSIS
     Dosage: 125 MG/DAY
     Route: 042
  2. VOLTAREN [Suspect]
     Indication: BACK DISORDER
     Dosage: 1 INJECTION EVERY 6 HOURS
     Dates: start: 20080115
  3. CAPTOPRIL [Concomitant]
     Indication: HYPERTENSION
     Dosage: 20 MG/DAY
     Route: 048
     Dates: start: 20030101
  4. GLIBENCLAMIDE [Concomitant]
     Indication: TYPE 2 DIABETES MELLITUS
     Dosage: 10 MG/DAY
     Route: 048
  5. GLIBENCLAMIDE [Concomitant]
     Dosage: 1 TABLET EVERY 2 DAYS
     Route: 048
     Dates: start: 19930101
  6. SALICIN [Concomitant]
     Indication: HYPERTENSION
     Dosage: 10 MG/DAY
  7. GLIMEPIRIDE [Concomitant]
     Indication: DIABETES MELLITUS
     Dosage: 5 MG, QD
     Route: 048
  8. DIAZEPAM [Concomitant]
     Indication: EPILEPSY
     Dosage: 10 MG, QD
  9. DICLOFENAC [Concomitant]
     Indication: BONE PAIN
     Dosage: 15 MG/DAY
     Route: 048
     Dates: start: 20060101

REACTIONS (25)
  - ANOREXIA [None]
  - APPLICATION SITE SWELLING [None]
  - BRAIN SCAN ABNORMAL [None]
  - CEREBROVASCULAR ACCIDENT [None]
  - DIZZINESS [None]
  - DYSPNOEA [None]
  - EPILEPSY [None]
  - FEELING ABNORMAL [None]
  - GAIT DISTURBANCE [None]
  - GRIP STRENGTH DECREASED [None]
  - HALLUCINATION [None]
  - HYPOACUSIS [None]
  - HYPOAESTHESIA [None]
  - INCORRECT DOSE ADMINISTERED [None]
  - INCORRECT ROUTE OF DRUG ADMINISTRATION [None]
  - INJECTION SITE ERYTHEMA [None]
  - INJECTION SITE PHLEBITIS [None]
  - IRRITABILITY [None]
  - MEMORY IMPAIRMENT [None]
  - MONOPLEGIA [None]
  - NERVOUSNESS [None]
  - TINNITUS [None]
  - VISUAL IMPAIRMENT [None]
  - VOMITING [None]
  - WEIGHT DECREASED [None]
